FAERS Safety Report 10168344 (Version 1)
Quarter: 2014Q2

REPORT INFORMATION
  Report Type: Spontaneous
  Country: GB (occurrence: GB)
  Receive Date: 20140512
  Receipt Date: 20140512
  Transmission Date: 20141212
  Serious: Yes (Hospitalization)
  Sender: FDA-Public Use
  Company Number: PHHY2014GB057108

PATIENT
  Age: 40 Year
  Sex: Male

DRUGS (6)
  1. DICLOFENAC [Suspect]
     Indication: PSORIATIC ARTHROPATHY
     Dosage: 50 MG, TID
  2. METHOTREXATE [Suspect]
  3. DEPOMEDRONE [Concomitant]
     Route: 065
  4. PARACETAMOL [Concomitant]
     Indication: PSORIATIC ARTHROPATHY
  5. CODEINE [Concomitant]
     Indication: PSORIATIC ARTHROPATHY
  6. SULFASALAZINE [Concomitant]

REACTIONS (3)
  - Pseudoporphyria [Recovered/Resolved]
  - Skin fragility [Recovered/Resolved]
  - Liver function test abnormal [Unknown]
